FAERS Safety Report 26132122 (Version 1)
Quarter: 2025Q4

REPORT INFORMATION
  Report Type: Spontaneous
  Country: US (occurrence: US)
  Receive Date: 20251208
  Receipt Date: 20251208
  Transmission Date: 20260119
  Serious: No
  Sender: NOVARTIS
  Company Number: US-002147023-NVSC2025US186108

PATIENT
  Sex: Female

DRUGS (1)
  1. KESIMPTA [Suspect]
     Active Substance: OFATUMUMAB
     Indication: Product used for unknown indication
     Dosage: UNK
     Route: 065

REACTIONS (4)
  - Device mechanical issue [Unknown]
  - Injection site pain [Unknown]
  - Device information output issue [Unknown]
  - Device delivery system issue [Unknown]
